FAERS Safety Report 8395269-5 (Version None)
Quarter: 2012Q2

REPORT INFORMATION
  Report Type: 
  Country: None (occurrence: None)
  Receive Date: 20120530
  Receipt Date: 20120525
  Transmission Date: 20120825
  Serious: Yes (Hospitalization)
  Sender: FDA-Public Use
  Company Number: PHEH2012US010877

PATIENT
  Age: 80 Year
  Sex: Male

DRUGS (2)
  1. DIOVAN [Suspect]
     Dosage: UNK UKN, UNK
  2. TEKTURNA [Suspect]
     Dosage: UNK UKN, UNK

REACTIONS (3)
  - BLOOD SODIUM DECREASED [None]
  - SYNCOPE [None]
  - RENAL IMPAIRMENT [None]
